FAERS Safety Report 22381525 (Version 5)
Quarter: 2025Q1

REPORT INFORMATION
  Report Type: Report from Study
  Country: ES (occurrence: ES)
  Receive Date: 20230530
  Receipt Date: 20250122
  Transmission Date: 20250409
  Serious: No
  Sender: TAKEDA
  Company Number: ES-TAKEDA-2023TUS052672

PATIENT
  Age: 8 Year
  Sex: Female

DRUGS (10)
  1. TEDUGLUTIDE [Suspect]
     Active Substance: TEDUGLUTIDE
     Indication: Short-bowel syndrome
     Dosage: 0.5 MILLIGRAM, QD
     Dates: start: 20200122, end: 20200413
  2. TEDUGLUTIDE [Suspect]
     Active Substance: TEDUGLUTIDE
  3. TEDUGLUTIDE [Suspect]
     Active Substance: TEDUGLUTIDE
  4. TEDUGLUTIDE [Suspect]
     Active Substance: TEDUGLUTIDE
  5. RAPAMYCIN [Concomitant]
     Active Substance: SIROLIMUS
     Indication: Post procedural complication
     Dosage: 1.1 MILLIGRAM, QD
     Dates: start: 20230209, end: 20230215
  6. RAPAMYCIN [Concomitant]
     Active Substance: SIROLIMUS
     Dosage: 0.8 MILLIGRAM, QD
     Dates: start: 20230215, end: 20230221
  7. RAPAMYCIN [Concomitant]
     Active Substance: SIROLIMUS
     Dosage: 0.7 MILLIGRAM, QD
     Dates: start: 20230221, end: 20230317
  8. RAPAMYCIN [Concomitant]
     Active Substance: SIROLIMUS
     Dosage: 0.8 MILLIGRAM, QD
     Dates: start: 20230317, end: 20230328
  9. CEFUROXIME [Concomitant]
     Active Substance: CEFUROXIME
     Indication: Viral infection
     Dosage: 275 MILLIGRAM, TID
     Dates: start: 20230623, end: 20230630
  10. FERPLEX [Concomitant]
     Indication: Iron deficiency
     Dosage: 1 DOSAGE FORM, QD
     Dates: start: 20230623

REACTIONS (2)
  - Gastroenteritis [Recovered/Resolved]
  - Vaccination site pain [Recovered/Resolved]

NARRATIVE: CASE EVENT DATE: 20241106
